FAERS Safety Report 4947565-9 (Version None)
Quarter: 2006Q1

REPORT INFORMATION
  Report Type: 
  Country: None (occurrence: None)
  Receive Date: 20060320
  Receipt Date: 20060206
  Transmission Date: 20060701
  Serious: Yes (Other)
  Sender: FDA-Public Use
  Company Number: PHBS2006BR02199

PATIENT
  Sex: Female

DRUGS (2)
  1. CARDIAC THERAPY [Suspect]
  2. STALEVO 100 [Suspect]
     Indication: PARKINSON'S DISEASE
     Route: 048

REACTIONS (3)
  - PAIN IN EXTREMITY [None]
  - SKIN LESION [None]
  - VASCULITIS [None]
